FAERS Safety Report 20229011 (Version 6)
Quarter: 2022Q3

REPORT INFORMATION
  Report Type: Report from Study
  Country: US (occurrence: US)
  Receive Date: 20211225
  Receipt Date: 20220705
  Transmission Date: 20221026
  Serious: Yes (Hospitalization, Other)
  Sender: FDA-Public Use
  Company Number: US-NOVARTISTESTPH-NVSC2021US291702

PATIENT
  Age: 36 Year
  Sex: Female
  Weight: 122.45 kg

DRUGS (5)
  1. TREPROSTINIL [Suspect]
     Active Substance: TREPROSTINIL
     Indication: Pulmonary arterial hypertension
     Dosage: UNK UNK, CONT (70 NG/KG/MIN)
     Route: 042
     Dates: start: 20211026
  2. TREPROSTINIL [Suspect]
     Active Substance: TREPROSTINIL
     Dosage: 72 NG/KG/MIN, CONTINUOUS
     Route: 042
  3. TADALAFIL [Concomitant]
     Active Substance: TADALAFIL
     Indication: Product used for unknown indication
     Dosage: UNK
     Route: 065
  4. OPSUMIT [Concomitant]
     Active Substance: MACITENTAN
     Indication: Product used for unknown indication
     Dosage: UNK
     Route: 065
  5. REMODULIN [Concomitant]
     Active Substance: TREPROSTINIL
     Indication: Product used for unknown indication
     Dosage: UNK
     Route: 065

REACTIONS (6)
  - Vascular device infection [Unknown]
  - Septic shock [Unknown]
  - Sepsis [Unknown]
  - Thrombosis [Unknown]
  - Nasopharyngitis [Unknown]
  - Influenza like illness [Unknown]

NARRATIVE: CASE EVENT DATE: 20211215
